FAERS Safety Report 20718811 (Version 2)
Quarter: 2022Q3

REPORT INFORMATION
  Report Type: Spontaneous
  Country: US (occurrence: US)
  Receive Date: 20220418
  Receipt Date: 20220803
  Transmission Date: 20221027
  Serious: Yes (Hospitalization)
  Sender: FDA-Public Use
  Company Number: US-JNJFOC-20220342169

PATIENT
  Age: 33 Year
  Sex: Female

DRUGS (2)
  1. NEOSPORIN [Suspect]
     Active Substance: BACITRACIN ZINC\NEOMYCIN SULFATE\POLYMYXIN B SULFATE
     Indication: Skin lesion
     Route: 061
  2. COLLAGENASE SANTYL [Concomitant]
     Active Substance: COLLAGENASE CLOSTRIDIUM HISTOLYTICUM
     Indication: Product used for unknown indication
     Dosage: 250 U/G
     Route: 065
     Dates: start: 20211025

REACTIONS (4)
  - Application site ulcer [Unknown]
  - Wound infection [Unknown]
  - Product dose omission issue [Unknown]
  - Rash [Unknown]
